FAERS Safety Report 24403725 (Version 1)
Quarter: 2024Q4

REPORT INFORMATION
  Report Type: Report from Study
  Country: US (occurrence: US)
  Receive Date: 20241007
  Receipt Date: 20241007
  Transmission Date: 20250115
  Serious: No
  Sender: ROCHE
  Company Number: US-ROCHE-3190729

PATIENT
  Age: 31 Year
  Sex: Female

DRUGS (1)
  1. GAZYVA [Suspect]
     Active Substance: OBINUTUZUMAB
     Indication: Chronic cutaneous lupus erythematosus
     Dosage: INFUSE 100MG INTRAVENOUSLY DAY 1, 900 MG DAY 2, 100MG DAY 14, THEN 1000MG?EVERY 6 MONTH(S)?DATE OF S
     Route: 042

REACTIONS (2)
  - Off label use [Unknown]
  - No adverse event [Unknown]
